FAERS Safety Report 25586779 (Version 1)
Quarter: 2025Q3

REPORT INFORMATION
  Report Type: Spontaneous
  Country: EU (occurrence: EU)
  Receive Date: 20250721
  Receipt Date: 20250721
  Transmission Date: 20251021
  Serious: Yes (Hospitalization)
  Sender: MYLAN
  Company Number: None

PATIENT
  Age: 13 Year
  Sex: Female
  Weight: 60 kg

DRUGS (12)
  1. LEVETIRACETAM [Suspect]
     Active Substance: LEVETIRACETAM
     Indication: Epilepsy
     Dosage: 1000 MILLIGRAM, BID (MORNING AND EVENING) (2000 MILLIGRAM, QD)
     Dates: start: 20241025, end: 20241128
  2. LEVETIRACETAM [Suspect]
     Active Substance: LEVETIRACETAM
     Dosage: 1000 MILLIGRAM, BID (MORNING AND EVENING) (2000 MILLIGRAM, QD)
     Dates: start: 20241025, end: 20241128
  3. LEVETIRACETAM [Suspect]
     Active Substance: LEVETIRACETAM
     Dosage: 1000 MILLIGRAM, BID (MORNING AND EVENING) (2000 MILLIGRAM, QD)
     Route: 048
     Dates: start: 20241025, end: 20241128
  4. LEVETIRACETAM [Suspect]
     Active Substance: LEVETIRACETAM
     Dosage: 1000 MILLIGRAM, BID (MORNING AND EVENING) (2000 MILLIGRAM, QD)
     Route: 048
     Dates: start: 20241025, end: 20241128
  5. LEVETIRACETAM [Suspect]
     Active Substance: LEVETIRACETAM
     Dosage: 1250 MILLIGRAM, BID (MORNING AND EVENING) (2500 MG, QD)
     Dates: start: 20241128, end: 20250211
  6. LEVETIRACETAM [Suspect]
     Active Substance: LEVETIRACETAM
     Dosage: 1250 MILLIGRAM, BID (MORNING AND EVENING) (2500 MG, QD)
     Dates: start: 20241128, end: 20250211
  7. LEVETIRACETAM [Suspect]
     Active Substance: LEVETIRACETAM
     Dosage: 1250 MILLIGRAM, BID (MORNING AND EVENING) (2500 MG, QD)
     Route: 048
     Dates: start: 20241128, end: 20250211
  8. LEVETIRACETAM [Suspect]
     Active Substance: LEVETIRACETAM
     Dosage: 1250 MILLIGRAM, BID (MORNING AND EVENING) (2500 MG, QD)
     Route: 048
     Dates: start: 20241128, end: 20250211
  9. LEVETIRACETAM [Suspect]
     Active Substance: LEVETIRACETAM
     Dosage: 1750 MILLIGRAM, BID (MORNING AND EVENING) (3500 MILLIGRAM, QD)
     Dates: start: 20250211, end: 20250504
  10. LEVETIRACETAM [Suspect]
     Active Substance: LEVETIRACETAM
     Dosage: 1750 MILLIGRAM, BID (MORNING AND EVENING) (3500 MILLIGRAM, QD)
     Route: 048
     Dates: start: 20250211, end: 20250504
  11. LEVETIRACETAM [Suspect]
     Active Substance: LEVETIRACETAM
     Dosage: 1750 MILLIGRAM, BID (MORNING AND EVENING) (3500 MILLIGRAM, QD)
     Dates: start: 20250211, end: 20250504
  12. LEVETIRACETAM [Suspect]
     Active Substance: LEVETIRACETAM
     Dosage: 1750 MILLIGRAM, BID (MORNING AND EVENING) (3500 MILLIGRAM, QD)
     Route: 048
     Dates: start: 20250211, end: 20250504

REACTIONS (3)
  - Type IV hypersensitivity reaction [Recovered/Resolved]
  - Rash morbilliform [Recovered/Resolved]
  - Allergy test positive [Recovered/Resolved]

NARRATIVE: CASE EVENT DATE: 20250501
